FAERS Safety Report 17261694 (Version 1)
Quarter: 2020Q1

REPORT INFORMATION
  Report Type: Spontaneous
  Country: US (occurrence: US)
  Receive Date: 20200110
  Receipt Date: 20200110
  Transmission Date: 20200409
  Serious: No
  Sender: FDA-Public Use
  Company Number: None

PATIENT
  Age: 77 Year
  Sex: Male
  Weight: 106 kg

DRUGS (6)
  1. CEFAZOLIN [Concomitant]
     Active Substance: CEFAZOLIN
     Dates: start: 20200106, end: 20200106
  2. HEPARIN [Suspect]
     Active Substance: HEPARIN SODIUM
     Indication: STENT PLACEMENT
     Dosage: ?          OTHER FREQUENCY:ONCE;?
     Route: 042
     Dates: start: 20200106, end: 20200106
  3. MIDAZOLAM HYDROCHLORIDE. [Concomitant]
     Active Substance: MIDAZOLAM HYDROCHLORIDE
     Dates: start: 20200106, end: 20200106
  4. D5W 0.45% FLUID [Concomitant]
     Dates: start: 20200106, end: 20200106
  5. NITROGLYCERIN. [Concomitant]
     Active Substance: NITROGLYCERIN
     Dates: start: 20200106, end: 20200106
  6. FENTANYL. [Concomitant]
     Active Substance: FENTANYL
     Dates: start: 20200106, end: 20200106

REACTIONS (2)
  - Drug ineffective [None]
  - Vascular stent thrombosis [None]

NARRATIVE: CASE EVENT DATE: 20200106
